FAERS Safety Report 9937299 (Version 2)
Quarter: 2014Q2

REPORT INFORMATION
  Report Type: Spontaneous
  Country: GB (occurrence: GB)
  Receive Date: 20140302
  Receipt Date: 20140526
  Transmission Date: 20141212
  Serious: Yes (Hospitalization)
  Sender: FDA-Public Use
  Company Number: GB-009507513-1402GBR012790

PATIENT
  Age: 59 Year
  Sex: Female
  Weight: 77.2 kg

DRUGS (5)
  1. MIRTAZAPINE [Suspect]
     Dosage: AT NIGHT.
     Route: 048
     Dates: end: 201311
  2. MIRTAZAPINE [Suspect]
     Dosage: AT NIGHT.
     Route: 048
     Dates: start: 201311
  3. BACLOFEN [Suspect]
     Dosage: 5 MG, 4/1 DAYS
     Route: 048
  4. LANSOPRAZOLE [Suspect]
     Dosage: 45 MG, 1/1 DAYS
     Route: 048
  5. LANSOPRAZOLE [Suspect]
     Dosage: IN THE MORNING. ORODISPERSIBLE
     Route: 048

REACTIONS (2)
  - White blood cell count abnormal [Unknown]
  - Liver function test abnormal [Not Recovered/Not Resolved]
